FAERS Safety Report 12117765 (Version 4)
Quarter: 2016Q4

REPORT INFORMATION
  Report Type: Spontaneous
  Country: US (occurrence: US)
  Receive Date: 20160226
  Receipt Date: 20161226
  Transmission Date: 20170206
  Serious: Yes (Death, Hospitalization, Disabling, Other)
  Sender: FDA-Public Use
  Company Number: US-009507513-1602USA010225

PATIENT
  Age: 81 Year
  Sex: Female

DRUGS (5)
  1. KEYTRUDA [Suspect]
     Active Substance: PEMBROLIZUMAB
     Indication: MALIGNANT MELANOMA
     Dosage: ^3 WEEKS^
     Route: 042
     Dates: start: 201508, end: 2015
  2. TIMOLOL MALEATE. [Concomitant]
     Active Substance: TIMOLOL MALEATE
     Route: 047
  3. HORIZANT [Concomitant]
     Active Substance: GABAPENTIN ENACARBIL
  4. KEYTRUDA [Suspect]
     Active Substance: PEMBROLIZUMAB
     Dosage: ^3 WEEKS^
     Route: 042
     Dates: start: 201511
  5. KEYTRUDA [Suspect]
     Active Substance: PEMBROLIZUMAB
     Indication: INTRAOCULAR MELANOMA
     Dosage: ^3 WEEKS^
     Route: 042
     Dates: start: 201501, end: 2015

REACTIONS (9)
  - Thyroid disorder [Unknown]
  - Blood potassium decreased [Unknown]
  - Decreased appetite [Unknown]
  - Death [Fatal]
  - Weight decreased [Unknown]
  - Middle ear effusion [Unknown]
  - Hypoacusis [Unknown]
  - Asthenia [Unknown]
  - Adverse reaction [Unknown]

NARRATIVE: CASE EVENT DATE: 2015
